FAERS Safety Report 9581012 (Version 1)
Quarter: 2013Q4

REPORT INFORMATION
  Report Type: Spontaneous
  Country: US (occurrence: US)
  Receive Date: 20131002
  Receipt Date: 20131002
  Transmission Date: 20140711
  Serious: Yes (Disabling)
  Sender: FDA-Public Use
  Company Number: US-009507513-1310USA000576

PATIENT
  Sex: 0

DRUGS (1)
  1. FOSAMAX [Suspect]

REACTIONS (1)
  - Upper limb fracture [Unknown]
